FAERS Safety Report 25082976 (Version 3)
Quarter: 2025Q2

REPORT INFORMATION
  Report Type: Spontaneous
  Country: US (occurrence: US)
  Receive Date: 20250317
  Receipt Date: 20250404
  Transmission Date: 20250717
  Serious: Yes (Other)
  Sender: ENDO
  Company Number: US-ENDO USA, INC.-2025-000784

PATIENT
  Sex: Male

DRUGS (1)
  1. XIAFLEX [Suspect]
     Active Substance: COLLAGENASE CLOSTRIDIUM HISTOLYTICUM
     Indication: Peyronie^s disease
     Route: 051
     Dates: start: 202502, end: 2025

REACTIONS (11)
  - Fracture of penis [Unknown]
  - Haemorrhoids [Recovered/Resolved]
  - Erythema [Recovered/Resolved]
  - Testicular pain [Recovered/Resolved]
  - Diarrhoea [Recovered/Resolved]
  - Deformity [Unknown]
  - Pruritus [Recovered/Resolved]
  - Product administration error [Unknown]
  - Testicular swelling [Recovered/Resolved]
  - Treatment noncompliance [Unknown]
  - Drug ineffective [Unknown]

NARRATIVE: CASE EVENT DATE: 20250201
